FAERS Safety Report 19142418 (Version 15)
Quarter: 2022Q2

REPORT INFORMATION
  Report Type: Report from Study
  Country: FR (occurrence: FR)
  Receive Date: 20210416
  Receipt Date: 20220607
  Transmission Date: 20220721
  Serious: Yes (Hospitalization, Other)
  Sender: FDA-Public Use
  Company Number: FR-ABBVIE-21K-056-3850482-00

PATIENT
  Age: 68 Year
  Sex: Female

DRUGS (9)
  1. CARBIDOPA\LEVODOPA [Suspect]
     Active Substance: CARBIDOPA\LEVODOPA
     Indication: Parkinson^s disease
     Route: 050
     Dates: start: 202103, end: 2021
  2. CARBIDOPA\LEVODOPA [Suspect]
     Active Substance: CARBIDOPA\LEVODOPA
     Dosage: CONTINOUS FLOW RATE INCREASED BY 0.3ML/H
     Route: 050
     Dates: start: 2021, end: 2021
  3. CARBIDOPA\LEVODOPA [Suspect]
     Active Substance: CARBIDOPA\LEVODOPA
     Dosage: CONTINUOUS FLOW RATE 8.5 ML/H, MD: 7 ML
     Route: 050
     Dates: start: 2021, end: 2021
  4. CARBIDOPA\LEVODOPA [Suspect]
     Active Substance: CARBIDOPA\LEVODOPA
     Dosage: MD:5ML; CONTINUOUS FLOW RATE DURING THE DAY:8.8ML/H FROM 10AM TO 9PM; EXTRA DOSE: 2ML
     Route: 050
     Dates: start: 2021
  5. CARBIDOPA\LEVODOPA [Suspect]
     Active Substance: CARBIDOPA\LEVODOPA
     Dosage: CONTINUOUS FLOW RATE DURING THE DAY: 8.8ML/H FROM 10AM TO 14PM, 8.5ML/H FROM 14PM TO 23PM
     Route: 050
     Dates: start: 202201, end: 2022
  6. CARBIDOPA\LEVODOPA [Suspect]
     Active Substance: CARBIDOPA\LEVODOPA
     Dosage: CONTINUOUS FLOW RATE DURING THE DAY: 8.5ML/H FROM 10:00 AM TO 11:00 PM PM
     Route: 050
     Dates: start: 2022
  7. DAFALGAN [Concomitant]
     Active Substance: ACETAMINOPHEN
     Indication: Pain
  8. DAFALGAN [Concomitant]
     Active Substance: ACETAMINOPHEN
     Indication: Haematoma
  9. SINEMET [Concomitant]
     Active Substance: CARBIDOPA\LEVODOPA
     Indication: Product used for unknown indication
     Route: 048

REACTIONS (30)
  - Balance disorder [Not Recovered/Not Resolved]
  - Jaw fracture [Not Recovered/Not Resolved]
  - Haematoma [Not Recovered/Not Resolved]
  - Self esteem decreased [Not Recovered/Not Resolved]
  - Musculoskeletal stiffness [Unknown]
  - Loss of personal independence in daily activities [Unknown]
  - Intentional product misuse [Not Recovered/Not Resolved]
  - Memory impairment [Unknown]
  - Device issue [Unknown]
  - Feeling abnormal [Not Recovered/Not Resolved]
  - Head injury [Not Recovered/Not Resolved]
  - Foot deformity [Unknown]
  - Gait disturbance [Unknown]
  - Fall [Recovered/Resolved]
  - Fall [Unknown]
  - Fall [Recovered/Resolved]
  - Fear [Not Recovered/Not Resolved]
  - Device dislocation [Not Recovered/Not Resolved]
  - Weight decreased [Unknown]
  - Pain [Not Recovered/Not Resolved]
  - Agitation [Not Recovered/Not Resolved]
  - Freezing phenomenon [Unknown]
  - Anxiety [Unknown]
  - Abdominal pain [Not Recovered/Not Resolved]
  - Dyskinesia [Recovered/Resolved]
  - Dyskinesia [Recovered/Resolved]
  - Dyskinesia [Unknown]
  - Hypophagia [Unknown]
  - Weight decreased [Unknown]
  - Seizure [Unknown]

NARRATIVE: CASE EVENT DATE: 20210101
